FAERS Safety Report 5373406-4 (Version None)
Quarter: 2007Q2

REPORT INFORMATION
  Report Type: 
  Country: None (occurrence: None)
  Receive Date: 20070628
  Receipt Date: 20070619
  Transmission Date: 20071010
  Serious: Yes (Hospitalization, Other)
  Sender: FDA-Public Use
  Company Number: US-AVENTIS-200714502US

PATIENT
  Age: 84 Year
  Sex: Female
  Weight: 58.6 kg

DRUGS (8)
  1. LASIX [Suspect]
     Indication: DRUG USE FOR UNKNOWN INDICATION
     Route: 048
     Dates: start: 20010101
  2. SPIRONOLACTONE [Suspect]
     Indication: CARDIAC FAILURE CONGESTIVE
     Route: 048
     Dates: start: 20060801, end: 20061101
  3. METOPROLOL TARTRATE [Suspect]
     Indication: DRUG USE FOR UNKNOWN INDICATION
     Route: 048
     Dates: start: 20060601, end: 20060801
  4. METOPROLOL TARTRATE [Suspect]
     Route: 048
     Dates: start: 20060801, end: 20060901
  5. COREG [Suspect]
     Indication: DRUG USE FOR UNKNOWN INDICATION
     Dosage: DOSE: UNK
     Dates: start: 20040601, end: 20060601
  6. MAVIK [Suspect]
     Indication: DRUG USE FOR UNKNOWN INDICATION
     Dosage: DOSE: UNK
     Dates: start: 20040601, end: 20060601
  7. ENALAPRIL [Suspect]
     Indication: DRUG USE FOR UNKNOWN INDICATION
     Route: 048
     Dates: start: 20060601
  8. K-DUR 10 [Suspect]
     Indication: DRUG USE FOR UNKNOWN INDICATION
     Dates: start: 20010101, end: 20060801

REACTIONS (9)
  - ABDOMINAL DISTENSION [None]
  - ANOREXIA [None]
  - BLOOD POTASSIUM DECREASED [None]
  - BLOOD PRESSURE DECREASED [None]
  - COUGH [None]
  - GASTRIC CANCER [None]
  - HYPERTENSION [None]
  - MINERAL DEFICIENCY [None]
  - OEDEMA PERIPHERAL [None]
